FAERS Safety Report 16723439 (Version 2)
Quarter: 2020Q3

REPORT INFORMATION
  Report Type: Spontaneous
  Country: US (occurrence: US)
  Receive Date: 20190821
  Receipt Date: 20200814
  Transmission Date: 20201102
  Serious: Yes (Death)
  Sender: FDA-Public Use
  Company Number: US-AMRING PHARMACEUTICALS INC.-2019US008223

PATIENT
  Age: 83 Year
  Sex: Female

DRUGS (1)
  1. SUCCINYLCHOLINE VIAL [Suspect]
     Active Substance: SUCCINYLCHOLINE
     Indication: ENDOTRACHEAL INTUBATION
     Dosage: 50 MG, UNK
     Route: 042
     Dates: start: 20190805

REACTIONS (4)
  - Apnoeic attack [Fatal]
  - Drug ineffective [Unknown]
  - Unresponsive to stimuli [Fatal]
  - Product complaint [Unknown]

NARRATIVE: CASE EVENT DATE: 20190805
